FAERS Safety Report 23350862 (Version 1)
Quarter: 2023Q4

REPORT INFORMATION
  Report Type: Spontaneous
  Country: None (occurrence: CA)
  Receive Date: 20231229
  Receipt Date: 20231229
  Transmission Date: 20240110
  Serious: Yes (Other)
  Sender: FDA-Public Use
  Company Number: CA-B.Braun Medical Inc.-2149932

PATIENT
  Age: 77 Year
  Sex: Female

DRUGS (7)
  1. POTASSIUM CHLORIDE [Suspect]
     Active Substance: POTASSIUM CHLORIDE
  2. AMLODIPINE [Suspect]
     Active Substance: AMLODIPINE BESYLATE
  3. CLONAZEPAM [Suspect]
     Active Substance: CLONAZEPAM
  4. PREDNISONE [Suspect]
     Active Substance: PREDNISONE
  5. PROLIA [Suspect]
     Active Substance: DENOSUMAB
  6. TAFINLAR [Suspect]
     Active Substance: DABRAFENIB MESYLATE
  7. TRAMETINIB DIMETHYL SULFOXIDE [Suspect]
     Active Substance: TRAMETINIB DIMETHYL SULFOXIDE

REACTIONS (14)
  - Abdominal discomfort [None]
  - Amnesia [None]
  - Diarrhoea [None]
  - Dry mouth [None]
  - Dyspnoea [None]
  - Fatigue [None]
  - Frequent bowel movements [None]
  - Headache [None]
  - Inappropriate schedule of product administration [None]
  - Nervousness [None]
  - Peripheral swelling [None]
  - Squamous cell carcinoma [None]
  - Vomiting [None]
  - Weight decreased [None]
